FAERS Safety Report 5305464-7 (Version None)
Quarter: 2007Q2

REPORT INFORMATION
  Report Type: 
  Country: None (occurrence: None)
  Receive Date: 20070416
  Receipt Date: 20070330
  Transmission Date: 20071010
  Serious: Yes (Hospitalization)
  Sender: FDA-Public Use
  Company Number: 2007EU000768

PATIENT
  Age: 30 Year
  Sex: Male
  Weight: 58 kg

DRUGS (3)
  1. PROGRAF [Suspect]
     Dosage: 4.5 MG, BID, ORAL
     Route: 048
     Dates: start: 20061201
  2. PREDNISONE [Suspect]
     Dosage: 40 MG/D, ORAL
     Route: 048
     Dates: start: 20061018
  3. CELLCEPT [Suspect]
     Dosage: 1 G, BID, ORAL
     Route: 048
     Dates: start: 20061018

REACTIONS (1)
  - PYELONEPHRITIS [None]
